FAERS Safety Report 8159104-2 (Version None)
Quarter: 2012Q1

REPORT INFORMATION
  Report Type: 
  Country: None (occurrence: None)
  Receive Date: 20120223
  Receipt Date: 20120213
  Transmission Date: 20120608
  Serious: Yes (Hospitalization)
  Sender: FDA-Public Use
  Company Number: ES-ELI_LILLY_AND_COMPANY-ES201202003705

PATIENT
  Age: 82 Year
  Sex: Female

DRUGS (6)
  1. IBUPROFEN [Concomitant]
     Indication: PAIN
     Dosage: 600 MG, UNK
     Route: 048
     Dates: start: 20110801, end: 20110902
  2. CAPTOPRIL [Concomitant]
     Dosage: 25 MG, UNK
     Route: 048
     Dates: start: 20110801, end: 20110902
  3. DUSPATALIN [Concomitant]
     Indication: ABDOMINAL PAIN
     Dosage: 135 MG, UNK
     Route: 048
     Dates: start: 20041029, end: 20110902
  4. CHLORTHALIDONE [Concomitant]
     Indication: HYPERTENSION
     Dosage: 50 MG, UNK
     Route: 048
     Dates: start: 20110801, end: 20110902
  5. CYMBALTA [Suspect]
     Indication: HYPERTENSION
     Dosage: 30 MG, UNK
     Route: 048
     Dates: start: 20110829, end: 20110902
  6. OLMESARTAN MEDOXOMIL AND HYDROCHLOROTHIZIDE [Concomitant]
     Indication: HYPERTENSION
     Dosage: 1 DF, UNK

REACTIONS (4)
  - HYPOKALAEMIA [None]
  - HYPONATRAEMIA [None]
  - DRUG INTERACTION [None]
  - OFF LABEL USE [None]
